FAERS Safety Report 6122387-4 (Version None)
Quarter: 2009Q1

REPORT INFORMATION
  Report Type: 
  Country: None (occurrence: None)
  Receive Date: 20090318
  Receipt Date: 20090127
  Transmission Date: 20090719
  Serious: No
  Sender: FDA-Public Use
  Company Number: US-ASTRAZENECA-2009UW02478

PATIENT
  Age: 750 Month
  Sex: Female
  Weight: 67.1 kg

DRUGS (2)
  1. SYMBICORT [Suspect]
     Indication: ASTHMA
     Dosage: 320 MCG, TWO PUFFS TWICE DAILY
     Route: 055
     Dates: start: 20080901
  2. NASACORT [Concomitant]
     Indication: MULTIPLE ALLERGIES

REACTIONS (2)
  - CHILLS [None]
  - HERPES ZOSTER [None]
